FAERS Safety Report 17551506 (Version 2)
Quarter: 2020Q1

REPORT INFORMATION
  Report Type: Report from Study
  Country: US (occurrence: US)
  Receive Date: 20200317
  Receipt Date: 20200318
  Transmission Date: 20200409
  Serious: Yes (Other)
  Sender: FDA-Public Use
  Company Number: US-PFIZER INC-2019531387

PATIENT
  Age: 70 Year
  Sex: Female

DRUGS (7)
  1. IBRANCE [Suspect]
     Active Substance: PALBOCICLIB
     Dosage: 75 MG DAILY, 2 DOSES INSTEAD OF 5, LAST CYCLE
     Route: 048
  2. IBRANCE [Suspect]
     Active Substance: PALBOCICLIB
     Indication: BREAST CANCER FEMALE
     Dosage: 75 MG DAILY, 5 DAYS ON/ 2 WEEKS OFF PER MD (21 DAYS ON/7 DAYS OFF X SCRIPT)
     Route: 048
     Dates: start: 20191204
  3. XELODA [Concomitant]
     Active Substance: CAPECITABINE
     Dosage: UNK
  4. IBRANCE [Suspect]
     Active Substance: PALBOCICLIB
     Dosage: 75 MG DAILY, 4 DAYS ON, 2 WEEKS OFF, CYCLIC
     Route: 048
  5. FASLODEX [Concomitant]
     Active Substance: FULVESTRANT
     Dosage: UNK
  6. ARIMIDEX [Concomitant]
     Active Substance: ANASTROZOLE
     Dosage: UNK
  7. AROMASIN [Concomitant]
     Active Substance: EXEMESTANE
     Dosage: UNK

REACTIONS (21)
  - Myocardial necrosis marker increased [Unknown]
  - Gastroenteritis viral [Unknown]
  - Condition aggravated [Not Recovered/Not Resolved]
  - Diarrhoea [Recovering/Resolving]
  - Nervousness [Unknown]
  - Condition aggravated [Recovering/Resolving]
  - Tooth infection [Unknown]
  - Product use issue [Unknown]
  - Dry mouth [Unknown]
  - Haemoglobin decreased [Unknown]
  - Thirst [Unknown]
  - Peripheral swelling [Unknown]
  - Rash [Recovering/Resolving]
  - Skin exfoliation [Recovering/Resolving]
  - Stomatitis [Recovering/Resolving]
  - Joint swelling [Unknown]
  - Fatigue [Not Recovered/Not Resolved]
  - Nocturia [Unknown]
  - White blood cell count decreased [Unknown]
  - Protein total decreased [Not Recovered/Not Resolved]
  - Off label use [Unknown]

NARRATIVE: CASE EVENT DATE: 2019
